FAERS Safety Report 10202657 (Version 1)
Quarter: 2014Q2

REPORT INFORMATION
  Report Type: Spontaneous
  Country: DK (occurrence: DK)
  Receive Date: 20140528
  Receipt Date: 20140528
  Transmission Date: 20141212
  Serious: Yes (Hospitalization)
  Sender: FDA-Public Use
  Company Number: DK-ACTAVIS-2014-10943

PATIENT
  Age: 64 Year
  Sex: Female

DRUGS (1)
  1. EPIRUBICIN ACTAVIS [Suspect]
     Indication: BREAST CANCER
     Dosage: INFUSION 170 MG (ABOUT HALF FILED)
     Route: 050
     Dates: start: 20140422, end: 20140422

REACTIONS (7)
  - Neutropenia [Unknown]
  - Leukopenia [Unknown]
  - Infusion related reaction [Recovered/Resolved]
  - Infusion site erythema [Recovered/Resolved]
  - Extravasation [Recovered/Resolved]
  - Thrombocytopenia [Unknown]
  - Drug administration error [Recovered/Resolved]
